FAERS Safety Report 7619640-1 (Version None)
Quarter: 2011Q3

REPORT INFORMATION
  Report Type: 
  Country: None (occurrence: None)
  Receive Date: 20110719
  Receipt Date: 20110711
  Transmission Date: 20111222
  Serious: Yes (Hospitalization, Other)
  Sender: FDA-Public Use
  Company Number: DE-JNJFOC-20110703043

PATIENT
  Age: 27 Year
  Sex: Female

DRUGS (3)
  1. ZIPRASIDONE HYDROCHLORIDE [Suspect]
     Route: 065
  2. RISPERDAL [Suspect]
     Indication: AGITATION
     Route: 048
  3. ZIPRASIDONE HYDROCHLORIDE [Suspect]
     Indication: AGITATION
     Route: 065
     Dates: start: 20110601

REACTIONS (3)
  - CATARACT [None]
  - HYPERSOMNIA [None]
  - INCREASED APPETITE [None]
